FAERS Safety Report 8205284-X (Version None)
Quarter: 2012Q1

REPORT INFORMATION
  Report Type: 
  Country: None (occurrence: None)
  Receive Date: 20120313
  Receipt Date: 20120302
  Transmission Date: 20120608
  Serious: No
  Sender: FDA-Public Use
  Company Number: US-JNJFOC-20120303006

PATIENT
  Sex: Female
  Weight: 68.04 kg

DRUGS (7)
  1. FENTANYL-100 [Suspect]
     Dosage: 2 100UG/HR PATCHES
     Route: 062
     Dates: start: 20100101
  2. XANAX [Concomitant]
     Route: 048
     Dates: start: 20090101
  3. SYNTHROID [Concomitant]
     Indication: THYROID DISORDER
     Route: 048
     Dates: start: 20020101
  4. PRILOSEC [Concomitant]
     Indication: GASTRIC DISORDER
     Route: 048
  5. FLEXERIL [Concomitant]
     Indication: NECK PAIN
     Route: 048
     Dates: start: 20100101
  6. FENTANYL-100 [Suspect]
     Indication: NECK PAIN
     Dosage: 2 100UG/HR PATCHES
     Route: 062
  7. CITALOPRAM HYDROBROMIDE [Concomitant]
     Indication: DEPRESSION
     Dates: start: 20080101

REACTIONS (4)
  - NASOPHARYNGITIS [None]
  - PRODUCT QUALITY ISSUE [None]
  - WRONG TECHNIQUE IN DRUG USAGE PROCESS [None]
  - POOR QUALITY DRUG ADMINISTERED [None]
